FAERS Safety Report 8078625-4 (Version None)
Quarter: 2012Q1

REPORT INFORMATION
  Report Type: 
  Country: None (occurrence: None)
  Receive Date: 20120124
  Receipt Date: 20120116
  Transmission Date: 20120608
  Serious: Yes (Hospitalization)
  Sender: FDA-Public Use
  Company Number: AUR-APL-2012-00512

PATIENT
  Age: 67 Year
  Sex: Female
  Weight: 60.8 kg

DRUGS (5)
  1. MIRTAZAPINE [Suspect]
     Indication: ANXIETY
     Dosage: 15 MG, ORAL
     Route: 048
     Dates: start: 20110621, end: 20110719
  2. ATORVASTATIN (ATORVASTATIN) [10005747 - BLOOD PRESSURE HIGH] [V.14.1] [Concomitant]
  3. FELODIPINE (FELODIPINE) [10005747 - BLOOD PRESSURE HIGH] [V.14.1] [Concomitant]
  4. METFORMIN (METFORMIN) [10012613 - DIABETES MELLITUS NON-INSULIN-DEPEND [Concomitant]
  5. IRBESARTAN (IRBESARTAN)  [10005747 - BLOOD PRESSURE HIGH] [V.14.1] [Concomitant]

REACTIONS (6)
  - HAEMOGLOBIN DECREASED [None]
  - BLOOD CREATININE INCREASED [None]
  - UPPER RESPIRATORY TRACT INFECTION [None]
  - GLOMERULAR FILTRATION RATE DECREASED [None]
  - ASTHENIA [None]
  - CHILLS [None]
